FAERS Safety Report 25100115 (Version 1)
Quarter: 2025Q1

REPORT INFORMATION
  Report Type: Spontaneous
  Country: GB (occurrence: GB)
  Receive Date: 20250320
  Receipt Date: 20250320
  Transmission Date: 20250409
  Serious: Yes (Other)
  Sender: AUROBINDO
  Company Number: GB-MHRA-MED-202503040740288580-CDRBM

PATIENT
  Age: 53 Year
  Sex: Female
  Weight: 67 kg

DRUGS (4)
  1. CLARITHROMYCIN [Suspect]
     Active Substance: CLARITHROMYCIN
     Indication: Product used for unknown indication
     Dosage: 400 MILLIGRAM, 3 TIMES A DAY [CLARITHROMYCIN AND LANSOPRAZOLE AND METRONIDAZOLE TRIPLE THERAPY]
     Route: 048
     Dates: start: 20250227, end: 20250302
  2. METRONIDAZOLE [Suspect]
     Active Substance: METRONIDAZOLE
     Indication: Dental care
     Dosage: 400 MILLIGRAM, 3 TIMES A DAY [CLARITHROMYCIN AND LANSOPRAZOLE AND METRONIDAZOLE TRIPLE THERAPY]
     Route: 048
     Dates: start: 20250227, end: 20250302
  3. LANSOPRAZOLE [Suspect]
     Active Substance: LANSOPRAZOLE
     Indication: Product used for unknown indication
     Dosage: 400 MILLIGRAM, 3 TIMES A DAY [CLARITHROMYCIN AND LANSOPRAZOLE AND METRONIDAZOLE TRIPLE THERAPY]
     Route: 048
     Dates: start: 20250227
  4. LEVOTHYROXINE [Concomitant]
     Active Substance: LEVOTHYROXINE
     Indication: Hypothyroidism
     Route: 065

REACTIONS (10)
  - Dizziness [Not Recovered/Not Resolved]
  - Chromaturia [Recovered/Resolved with Sequelae]
  - Nausea [Recovered/Resolved]
  - Headache [Recovering/Resolving]
  - Emotional disorder [Recovering/Resolving]
  - Hyperacusis [Recovering/Resolving]
  - Feeling cold [Recovering/Resolving]
  - Gait disturbance [Recovering/Resolving]
  - Brain fog [Recovering/Resolving]
  - Ataxia [Not Recovered/Not Resolved]

NARRATIVE: CASE EVENT DATE: 20250228
